FAERS Safety Report 10971239 (Version 2)
Quarter: 2015Q2

REPORT INFORMATION
  Report Type: Spontaneous
  Country: US (occurrence: US)
  Receive Date: 20150331
  Receipt Date: 20150409
  Transmission Date: 20150821
  Serious: Yes (Hospitalization, Other)
  Sender: FDA-Public Use
  Company Number: US-BAYER-2015-067244

PATIENT
  Age: 50 Year
  Sex: Female
  Weight: 79.37 kg

DRUGS (2)
  1. YAZ [Suspect]
     Active Substance: DROSPIRENONE\ETHINYL ESTRADIOL
     Indication: CONTRACEPTION
     Dosage: UNK
     Dates: start: 2008, end: 2013
  2. YASMIN [Suspect]
     Active Substance: DROSPIRENONE\ETHINYL ESTRADIOL
     Indication: CONTRACEPTION
     Dosage: UNK
     Dates: start: 2008, end: 2013

REACTIONS (12)
  - Exercise tolerance decreased [None]
  - Hyperchlorhydria [None]
  - Thrombosis [None]
  - Gallbladder disorder [None]
  - Pulmonary embolism [None]
  - Injury [None]
  - Cerebrovascular accident [None]
  - Deep vein thrombosis [None]
  - Emotional distress [None]
  - Cardiac discomfort [None]
  - Pain [None]
  - Cardiac hypertrophy [None]

NARRATIVE: CASE EVENT DATE: 2011
